FAERS Safety Report 5257198-5 (Version None)
Quarter: 2007Q1

REPORT INFORMATION
  Report Type: 
  Country: None (occurrence: None)
  Receive Date: 20070307
  Receipt Date: 20070227
  Transmission Date: 20070707
  Serious: Yes (Other)
  Sender: FDA-Public Use
  Company Number: GR-GLAXOSMITHKLINE-B0453016A

PATIENT
  Age: 22 Year
  Sex: Female

DRUGS (1)
  1. AMOXIL [Suspect]
     Indication: DENTAL OPERATION
     Dosage: 1CAP TWICE PER DAY
     Route: 048
     Dates: start: 20061201, end: 20061201

REACTIONS (4)
  - ABORTION SPONTANEOUS [None]
  - DRUG EXPOSURE DURING PREGNANCY [None]
  - PREGNANCY [None]
  - SOMNOLENCE [None]
